FAERS Safety Report 10226444 (Version 1)
Quarter: 2014Q2

REPORT INFORMATION
  Report Type: Spontaneous
  Country: US (occurrence: US)
  Receive Date: 20140609
  Receipt Date: 20140609
  Transmission Date: 20141212
  Serious: No
  Sender: FDA-Public Use
  Company Number: US-AMGEN INC.-USASP2013067620

PATIENT
  Age: 58 Year
  Sex: Male

DRUGS (1)
  1. PROCRIT [Suspect]
     Indication: PRODUCT USED FOR UNKNOWN INDICATION
     Dosage: 40000 UNIT, QWK
     Route: 065
     Dates: start: 20130830

REACTIONS (3)
  - Expired product administered [Unknown]
  - Drug dispensing error [Recovered/Resolved]
  - Rash [Unknown]
